FAERS Safety Report 24165025 (Version 7)
Quarter: 2024Q4

REPORT INFORMATION
  Report Type: Report from Study
  Country: CA (occurrence: CA)
  Receive Date: 20240802
  Receipt Date: 20241203
  Transmission Date: 20250114
  Serious: Yes (Hospitalization, Other)
  Sender: ABBVIE
  Company Number: CA-ABBVIE-5860633

PATIENT
  Age: 48 Year
  Sex: Male

DRUGS (2)
  1. RINVOQ [Suspect]
     Active Substance: UPADACITINIB
     Indication: Crohn^s disease
     Route: 048
     Dates: start: 202408, end: 202408
  2. RINVOQ [Suspect]
     Active Substance: UPADACITINIB
     Indication: Crohn^s disease
     Dosage: DISCONTINUED IN 2024
     Route: 048
     Dates: start: 20240505

REACTIONS (16)
  - Intestinal obstruction [Unknown]
  - Drug ineffective [Unknown]
  - Vomiting [Unknown]
  - Musculoskeletal pain [Unknown]
  - Large intestine perforation [Unknown]
  - Pain [Recovering/Resolving]
  - Defaecation urgency [Unknown]
  - Crohn^s disease [Unknown]
  - Abdominal pain [Unknown]
  - Infection [Unknown]
  - Nausea [Recovering/Resolving]
  - Product residue present [Unknown]
  - SARS-CoV-2 test positive [Unknown]
  - Abdominal pain lower [Unknown]
  - White blood cell count abnormal [Unknown]
  - Wound dehiscence [Unknown]

NARRATIVE: CASE EVENT DATE: 20240101
